FAERS Safety Report 7921466-6 (Version None)
Quarter: 2011Q4

REPORT INFORMATION
  Report Type: 
  Country: None (occurrence: None)
  Receive Date: 20111117
  Receipt Date: 20101130
  Transmission Date: 20120403
  Serious: No
  Sender: FDA-Public Use
  Company Number: US-MYLANLABS-2010S1022037

PATIENT
  Age: 5 Decade
  Sex: Female

DRUGS (1)
  1. NADOLOL [Suspect]
     Dates: start: 20070101

REACTIONS (1)
  - FEELING ABNORMAL [None]
